FAERS Safety Report 18486467 (Version 1)
Quarter: 2020Q4

REPORT INFORMATION
  Report Type: Spontaneous
  Country: US (occurrence: US)
  Receive Date: 20201110
  Receipt Date: 20201110
  Transmission Date: 20210114
  Serious: Yes (Hospitalization)
  Sender: FDA-Public Use
  Company Number: None

PATIENT
  Age: 75 Year
  Sex: Female

DRUGS (7)
  1. PREDNISONE. [Concomitant]
     Active Substance: PREDNISONE
  2. QUINAPRIL. [Concomitant]
     Active Substance: QUINAPRIL
  3. CEPHALEXIN. [Concomitant]
     Active Substance: CEPHALEXIN
  4. WELLBUTRIN [Concomitant]
     Active Substance: BUPROPION HYDROCHLORIDE
  5. ENBREL [Suspect]
     Active Substance: ETANERCEPT
     Indication: RHEUMATOID ARTHRITIS
     Route: 058
     Dates: start: 20150921
  6. AMOXICILLIN. [Concomitant]
     Active Substance: AMOXICILLIN
  7. GABAPENTIN. [Concomitant]
     Active Substance: GABAPENTIN

REACTIONS (4)
  - Condition aggravated [None]
  - Peripheral swelling [None]
  - Pain [None]
  - Loss of personal independence in daily activities [None]
